FAERS Safety Report 10455972 (Version 1)
Quarter: 2014Q3

REPORT INFORMATION
  Report Type: Spontaneous
  Country: US (occurrence: None)
  Receive Date: 20140915
  Receipt Date: 20140915
  Transmission Date: 20150326
  Serious: Yes (Disabling)
  Sender: FDA-Public Use
  Company Number: None

PATIENT
  Age: 63 Year
  Sex: Female
  Weight: 72.58 kg

DRUGS (1)
  1. AMOXICILLIN. [Suspect]
     Active Substance: AMOXICILLIN
     Indication: SINUSITIS
     Dosage: 1 CAP EVERY 8 HOURS, THREE TIMES DAILY, TAKEN BY MOUTH
     Route: 048
     Dates: start: 20140908, end: 20140911

REACTIONS (6)
  - Middle insomnia [None]
  - Vomiting [None]
  - Abdominal pain [None]
  - Sinusitis [None]
  - Diarrhoea [None]
  - Weight decreased [None]

NARRATIVE: CASE EVENT DATE: 20140911
